FAERS Safety Report 8603790-7 (Version None)
Quarter: 2012Q3

REPORT INFORMATION
  Report Type: 
  Country: None (occurrence: None)
  Receive Date: 20120817
  Receipt Date: 20120625
  Transmission Date: 20120928
  Serious: No
  Sender: FDA-Public Use
  Company Number: US-009507513-1208USA001339

PATIENT

DRUGS (1)
  1. CLARITIN [Suspect]
     Indication: PRODUCT USED FOR UNKNOWN INDICATION
     Dosage: UNK, ONCE
     Route: 048

REACTIONS (3)
  - VISUAL IMPAIRMENT [None]
  - DIZZINESS [None]
  - EXPIRED DRUG ADMINISTERED [None]
